FAERS Safety Report 8224182-9 (Version None)
Quarter: 2012Q1

REPORT INFORMATION
  Report Type: 
  Country: None (occurrence: None)
  Receive Date: 20120321
  Receipt Date: 20120312
  Transmission Date: 20120608
  Serious: Yes (Hospitalization)
  Sender: FDA-Public Use
  Company Number: SG-BRISTOL-MYERS SQUIBB COMPANY-16451890

PATIENT
  Age: 48 Year
  Sex: Female
  Weight: 49 kg

DRUGS (6)
  1. SPIRONOLACTONE [Concomitant]
     Dates: start: 20120208
  2. OMEPRAZOLE [Concomitant]
  3. PACLITAXEL [Suspect]
     Indication: GASTRIC CANCER
     Dosage: LAST: 8FEB12
     Route: 042
     Dates: start: 20110906
  4. DULCOLAX [Concomitant]
     Dates: start: 20120221
  5. LACTULOSE [Concomitant]
     Dates: start: 20120208
  6. SENNA [Concomitant]
     Dates: start: 20120208

REACTIONS (1)
  - ABDOMINAL DISTENSION [None]
